FAERS Safety Report 9341530 (Version 1)
Quarter: 2013Q2

REPORT INFORMATION
  Report Type: Spontaneous
  Country: US (occurrence: US)
  Receive Date: 20130611
  Receipt Date: 20130611
  Transmission Date: 20140414
  Serious: No
  Sender: FDA-Public Use
  Company Number: US-BAYER-2013-071431

PATIENT
  Age: 54 Year
  Sex: Female
  Weight: 53.06 kg

DRUGS (1)
  1. ALEVE TABLET [Suspect]
     Indication: ARTHRITIS
     Dosage: UNK UNK, QD
     Route: 048
     Dates: start: 201208

REACTIONS (2)
  - Incorrect drug administration duration [None]
  - Incorrect dose administered [None]
